FAERS Safety Report 6930234-3 (Version None)
Quarter: 2010Q3

REPORT INFORMATION
  Report Type: 
  Country: None (occurrence: None)
  Receive Date: 20100818
  Receipt Date: 20100812
  Transmission Date: 20110219
  Serious: Yes (Hospitalization)
  Sender: FDA-Public Use
  Company Number: A0875492A

PATIENT
  Age: 56 Year
  Sex: Female
  Weight: 105.5 kg

DRUGS (4)
  1. ALLI [Suspect]
     Indication: WEIGHT LOSS DIET
     Route: 048
     Dates: start: 20100101, end: 20100101
  2. VITAMIN E [Concomitant]
  3. MULTI-VITAMIN [Concomitant]
  4. UNKNOWN [Concomitant]
     Dosage: 500MG PER DAY

REACTIONS (6)
  - BLOOD MAGNESIUM DECREASED [None]
  - BLOOD POTASSIUM DECREASED [None]
  - BLOOD SODIUM DECREASED [None]
  - DRUG INEFFECTIVE [None]
  - HEAT EXHAUSTION [None]
  - VOMITING [None]
